FAERS Safety Report 6516382-0 (Version None)
Quarter: 2009Q4

REPORT INFORMATION
  Report Type: 
  Country: None (occurrence: None)
  Receive Date: 20091223
  Receipt Date: 20091221
  Transmission Date: 20100525
  Serious: Yes (Other)
  Sender: FDA-Public Use
  Company Number: A0836487A

PATIENT
  Sex: Female

DRUGS (1)
  1. ROSIGLITAZONE MALEATE [Suspect]
     Indication: DIABETES MELLITUS
     Dosage: 4MG PER DAY
     Route: 048

REACTIONS (4)
  - CARDIAC FAILURE CONGESTIVE [None]
  - DEHYDRATION [None]
  - DYSPNOEA [None]
  - OEDEMA PERIPHERAL [None]
